FAERS Safety Report 9505484 (Version 1)
Quarter: 2013Q1

REPORT INFORMATION
  Report Type: Spontaneous
  Country: US (occurrence: None)
  Receive Date: 20130220
  Receipt Date: 20130220
  Transmission Date: 20140127
  Serious: No
  Sender: FDA-Public Use
  Company Number: 1000041007

PATIENT
  Age: 48 Year
  Sex: Male

DRUGS (4)
  1. VIIBRYD (VILAZODONE HYDROCHLORIDE) [Suspect]
     Indication: DEPRESSION
     Route: 048
     Dates: start: 201211, end: 201211
  2. VIIBRYD (VILAZODONE HYDROCHLORIDE) [Suspect]
     Indication: ANXIETY
     Route: 048
     Dates: start: 201211, end: 201211
  3. ISENTRESS (RALTEGRAVIR POTASSUYN) [Concomitant]
  4. VIREAD (TENOFOVIR DISOPROXIL FUMARATE) [Concomitant]

REACTIONS (1)
  - Terminal insomnia [None]
